FAERS Safety Report 8072263-5 (Version None)
Quarter: 2012Q1

REPORT INFORMATION
  Report Type: 
  Country: None (occurrence: None)
  Receive Date: 20120126
  Receipt Date: 20120119
  Transmission Date: 20120608
  Serious: No
  Sender: FDA-Public Use
  Company Number: US-PFIZER INC-2012016883

PATIENT
  Sex: Female

DRUGS (2)
  1. SPIRIVA [Suspect]
  2. CELEBREX [Suspect]

REACTIONS (1)
  - ASTHENIA [None]
